FAERS Safety Report 14882312 (Version 2)
Quarter: 2018Q2

REPORT INFORMATION
  Report Type: Spontaneous
  Country: US (occurrence: US)
  Receive Date: 20180511
  Receipt Date: 20180612
  Transmission Date: 20180711
  Serious: No
  Sender: FDA-Public Use
  Company Number: US-009507513-1805USA003700

PATIENT
  Age: 33 Year
  Sex: Female
  Weight: 138.32 kg

DRUGS (6)
  1. ADDERALL XR [Concomitant]
     Active Substance: AMPHETAMINE ASPARTATE\AMPHETAMINE SULFATE\DEXTROAMPHETAMINE SACCHARATE\DEXTROAMPHETAMINE SULFATE
     Indication: ATTENTION DEFICIT/HYPERACTIVITY DISORDER
     Dosage: 1 CAPSULE, BID
     Route: 048
     Dates: start: 20180418
  2. WELLBUTRIN XL [Concomitant]
     Active Substance: BUPROPION HYDROCHLORIDE
     Dosage: 1 TABLET BY ORAL ROUTE EVERY DAY
  3. NEXPLANON [Suspect]
     Active Substance: ETONOGESTREL
     Indication: CONTRACEPTION
     Dosage: 1 IMPLANT FOR EVERY 3 YEARS
     Route: 059
     Dates: start: 20180502, end: 20180503
  4. ALPRAZOLAM. [Concomitant]
     Active Substance: ALPRAZOLAM
     Indication: ANXIETY
     Dosage: 1 TABLET, BID
     Route: 048
     Dates: start: 20180427
  5. FLUOXETINE [Concomitant]
     Active Substance: FLUOXETINE HYDROCHLORIDE
     Indication: DEPRESSION
     Dosage: 1 CAPSULE, QD
     Route: 048
     Dates: start: 20180427
  6. TRAZODONE HYDROCHLORIDE. [Concomitant]
     Active Substance: TRAZODONE HYDROCHLORIDE
     Dosage: 1-2 TABLETS BY ORAL ROUTE EVERY BEDTIME
     Route: 048

REACTIONS (5)
  - Pain in extremity [Recovering/Resolving]
  - Product quality issue [Unknown]
  - Device expulsion [Recovered/Resolved]
  - Complication associated with device [Unknown]
  - Dizziness [Recovering/Resolving]

NARRATIVE: CASE EVENT DATE: 201805
